FAERS Safety Report 9346057 (Version 1)
Quarter: 2013Q2

REPORT INFORMATION
  Report Type: Report from Study
  Country: NL (occurrence: NL)
  Receive Date: 20130613
  Receipt Date: 20130613
  Transmission Date: 20140414
  Serious: Yes (Other)
  Sender: FDA-Public Use
  Company Number: PHHY2013NL059960

PATIENT
  Age: 69 Year
  Sex: Male

DRUGS (3)
  1. ZOMETA [Suspect]
     Indication: PROSTATE CANCER METASTATIC
     Dosage: 4 MG/100 ML (1X PER 4 WEEKS)
  2. ZOMETA [Suspect]
     Dosage: 4 MG/100 ML (1X PER 4 WEEKS)
     Dates: start: 20120905
  3. ZOMETA [Suspect]
     Dosage: 4 MG/100 ML (1X PER 4 WEEKS)
     Dates: start: 20130514

REACTIONS (1)
  - Terminal state [Unknown]
